FAERS Safety Report 6262133-7 (Version None)
Quarter: 2009Q3

REPORT INFORMATION
  Report Type: 
  Country: None (occurrence: None)
  Receive Date: 20090709
  Receipt Date: 20090629
  Transmission Date: 20100115
  Serious: Yes (Hospitalization)
  Sender: FDA-Public Use
  Company Number: TW-BAXTER-2009BH004923

PATIENT
  Age: 64 Year
  Sex: Female

DRUGS (12)
  1. CYCLOPHOSPHAMIDE [Suspect]
     Indication: BREAST CANCER
     Route: 065
     Dates: start: 20081023, end: 20081023
  2. CYCLOPHOSPHAMIDE [Suspect]
     Route: 065
     Dates: start: 20080814, end: 20080814
  3. CYCLOPHOSPHAMIDE [Suspect]
     Route: 065
     Dates: start: 20080904, end: 20080904
  4. CYCLOPHOSPHAMIDE [Suspect]
     Route: 065
     Dates: start: 20081002, end: 20081002
  5. CYCLOPHOSPHAMIDE [Suspect]
     Route: 065
     Dates: start: 20090607, end: 20090607
  6. IXABEPILONE [Suspect]
     Indication: BREAST CANCER
     Route: 042
     Dates: start: 20081113, end: 20081113
  7. DOXORUBICIN HYDROCHLORIDE [Suspect]
     Indication: BREAST CANCER
     Route: 065
     Dates: start: 20081023, end: 20081023
  8. DOXORUBICIN HYDROCHLORIDE [Suspect]
     Route: 065
     Dates: start: 20080814, end: 20080814
  9. DOXORUBICIN HYDROCHLORIDE [Suspect]
     Route: 065
     Dates: start: 20080904, end: 20080904
  10. DOXORUBICIN HYDROCHLORIDE [Suspect]
     Route: 065
     Dates: start: 20081002, end: 20081002
  11. DOXORUBICIN HYDROCHLORIDE [Suspect]
     Route: 065
     Dates: start: 20090607, end: 20090607
  12. FILGRASTIM [Suspect]
     Indication: DRUG USE FOR UNKNOWN INDICATION
     Route: 065
     Dates: start: 20081115, end: 20081116

REACTIONS (4)
  - ASTHENIA [None]
  - LEUKOCYTOSIS [None]
  - MALAISE [None]
  - PYREXIA [None]
